FAERS Safety Report 8462910-8 (Version None)
Quarter: 2012Q2

REPORT INFORMATION
  Report Type: 
  Country: None (occurrence: None)
  Receive Date: 20120625
  Receipt Date: 20120611
  Transmission Date: 20120825
  Serious: Yes (Hospitalization, Disabling)
  Sender: FDA-Public Use
  Company Number: DE-ROCHE-1068002

PATIENT
  Sex: Male
  Weight: 108 kg

DRUGS (8)
  1. DEXAMETHASONE SODIUM PHOSPHATE [Concomitant]
     Route: 042
     Dates: start: 20120411
  2. GRANISETRON HYDROCHLORIDE [Concomitant]
     Route: 042
     Dates: start: 20120411
  3. FLUOROURACIL [Concomitant]
     Indication: COLON CANCER METASTATIC
     Route: 040
     Dates: start: 20120411
  4. IRINOTECAN HCL [Concomitant]
     Indication: COLON CANCER METASTATIC
     Route: 042
     Dates: start: 20120411
  5. FLUOROURACIL [Concomitant]
     Route: 041
     Dates: start: 20120411
  6. AVASTIN [Suspect]
     Indication: COLON CANCER METASTATIC
     Route: 042
     Dates: start: 20120411
  7. LEUCOVORIN CALCIUM [Concomitant]
     Indication: COLON CANCER METASTATIC
     Route: 042
     Dates: start: 20120411
  8. ASPIRIN [Concomitant]
     Route: 048
     Dates: start: 20120423

REACTIONS (5)
  - PERIPHERAL ARTERIAL OCCLUSIVE DISEASE [None]
  - IMPAIRED HEALING [None]
  - THROMBOSIS [None]
  - ACUTE RESPIRATORY FAILURE [None]
  - HAEMORRHAGIC ANAEMIA [None]
